FAERS Safety Report 19194240 (Version 1)
Quarter: 2021Q2

REPORT INFORMATION
  Report Type: Other
  Country: CZ (occurrence: CZ)
  Receive Date: 20210429
  Receipt Date: 20210429
  Transmission Date: 20210717
  Serious: Yes (Other)
  Sender: FDA-Public Use
  Company Number: CZ-STRIDES ARCOLAB LIMITED-2021SP004903

PATIENT
  Age: 44 Year
  Sex: Female
  Weight: 50 kg

DRUGS (1)
  1. IBUPROFEN. [Suspect]
     Active Substance: IBUPROFEN
     Indication: HEADACHE
     Dosage: 400 MILLIGRAM, PER DAY (PER 24 HR), CAPSULE
     Route: 048
     Dates: start: 20210408, end: 20210408

REACTIONS (7)
  - Diarrhoea [Unknown]
  - Insomnia [Unknown]
  - Seizure [Unknown]
  - Nausea [Unknown]
  - Gastrointestinal pain [Unknown]
  - Pyrexia [Unknown]
  - Restlessness [Unknown]

NARRATIVE: CASE EVENT DATE: 20210408
